FAERS Safety Report 17265914 (Version 1)
Quarter: 2020Q1

REPORT INFORMATION
  Report Type: Spontaneous
  Country: CA (occurrence: CA)
  Receive Date: 20200114
  Receipt Date: 20200114
  Transmission Date: 20200409
  Serious: Yes (Other)
  Sender: FDA-Public Use
  Company Number: CA-AUROBINDO-AUR-APL-2019-090069

PATIENT
  Age: 45 Year
  Sex: Female

DRUGS (3)
  1. CLARITHROMYCIN. [Suspect]
     Active Substance: CLARITHROMYCIN
     Indication: PRODUCT USED FOR UNKNOWN INDICATION
     Dosage: 500 MILLIGRAM, TWO TIMES A DAY (1000 MILLIGRAM, ONCE A DAY)
     Route: 065
  2. METRONIDAZOLE. [Suspect]
     Active Substance: METRONIDAZOLE
     Indication: PRODUCT USED FOR UNKNOWN INDICATION
     Dosage: 500 MILLIGRAM, 3 TIMES A DAY (1500 MG, QD)
     Route: 065
  3. PANTOPRAZOLE [Suspect]
     Active Substance: PANTOPRAZOLE
     Indication: PRODUCT USED FOR UNKNOWN INDICATION
     Dosage: 400 MILLIGRAM, TWO TIMES A DAY (800 MG, QD)
     Route: 065

REACTIONS (10)
  - Confusional state [Unknown]
  - Visual impairment [Unknown]
  - Clostridium test positive [Unknown]
  - Glossodynia [Unknown]
  - Tongue discomfort [Unknown]
  - Dysgeusia [Unknown]
  - Asthenia [Unknown]
  - Rash [Unknown]
  - Fatigue [Unknown]
  - Pruritus [Unknown]
